FAERS Safety Report 22344868 (Version 1)
Quarter: 2023Q2

REPORT INFORMATION
  Report Type: Report from Study
  Country: US (occurrence: US)
  Receive Date: 20230519
  Receipt Date: 20230519
  Transmission Date: 20230722
  Serious: No
  Sender: FDA-Public Use
  Company Number: US-INCYTE CORPORATION-2023IN003730

PATIENT

DRUGS (2)
  1. JAKAFI [Suspect]
     Active Substance: RUXOLITINIB
     Indication: Polycythaemia vera
     Dosage: 10 MILLIGRAM, BID
     Route: 065
     Dates: start: 20230209
  2. CELEBREX [Concomitant]
     Active Substance: CELECOXIB
     Indication: Product used for unknown indication
     Route: 065

REACTIONS (9)
  - Fatigue [Unknown]
  - Disturbance in attention [Unknown]
  - Early satiety [Unknown]
  - Decreased activity [Unknown]
  - Bone pain [Unknown]
  - Abnormal loss of weight [Unknown]
  - Abdominal pain [Unknown]
  - White blood cell count abnormal [Unknown]
  - Platelet count abnormal [Unknown]
